FAERS Safety Report 12917725 (Version 1)
Quarter: 2016Q4

REPORT INFORMATION
  Report Type: Spontaneous
  Country: US (occurrence: US)
  Receive Date: 20161107
  Receipt Date: 20161107
  Transmission Date: 20170207
  Serious: No
  Sender: FDA-Public Use
  Company Number: US-PFIZER INC-2016514186

PATIENT
  Age: 69 Year
  Sex: Female

DRUGS (14)
  1. PLAVIX [Suspect]
     Active Substance: CLOPIDOGREL BISULFATE
     Dosage: UNK
  2. ISOSORBIDE. [Suspect]
     Active Substance: ISOSORBIDE
     Dosage: UNK
  3. SYNTHROID [Suspect]
     Active Substance: LEVOTHYROXINE SODIUM
     Dosage: UNK
  4. LIPITOR [Suspect]
     Active Substance: ATORVASTATIN CALCIUM
     Dosage: UNK
  5. HCTZ [Suspect]
     Active Substance: HYDROCHLOROTHIAZIDE
     Dosage: UNK
  6. NEXIUM [Suspect]
     Active Substance: ESOMEPRAZOLE MAGNESIUM
     Dosage: UNK
  7. ASPIRIN. [Suspect]
     Active Substance: ASPIRIN
     Dosage: UNK
  8. ZETIA [Suspect]
     Active Substance: EZETIMIBE
     Dosage: UNK
  9. VESICARE [Suspect]
     Active Substance: SOLIFENACIN SUCCINATE
     Dosage: UNK
  10. COQ 10 [Suspect]
     Active Substance: UBIDECARENONE
     Dosage: UNK
  11. PRISTIQ EXTENDED-RELEASE [Suspect]
     Active Substance: DESVENLAFAXINE SUCCINATE
     Dosage: UNK
  12. BYSTOLIC [Suspect]
     Active Substance: NEBIVOLOL HYDROCHLORIDE
     Dosage: UNK
  13. FISH OIL [Suspect]
     Active Substance: FISH OIL
     Dosage: UNK
  14. B 50 [Suspect]
     Active Substance: BIOTIN\VITAMIN B COMPLEX
     Dosage: UNK

REACTIONS (1)
  - Drug hypersensitivity [Unknown]
